FAERS Safety Report 22300675 (Version 2)
Quarter: 2023Q2

REPORT INFORMATION
  Report Type: Spontaneous
  Country: US (occurrence: US)
  Receive Date: 20230509
  Receipt Date: 20230511
  Transmission Date: 20230722
  Serious: Yes (Life-Threatening, Hospitalization, Other)
  Sender: FDA-Public Use
  Company Number: US-009507513-2305USA001083

PATIENT
  Sex: Female

DRUGS (5)
  1. BRIDION [Suspect]
     Active Substance: SUGAMMADEX
     Dosage: ONE DOSE
     Route: 042
     Dates: start: 20230428
  2. FENTANYL [Concomitant]
     Active Substance: FENTANYL
     Indication: Sedation
     Dosage: UNK
  3. VERSED [Concomitant]
     Active Substance: MIDAZOLAM HYDROCHLORIDE
     Indication: Sedation
     Dosage: UNK
  4. SEVOFLURANE [Concomitant]
     Active Substance: SEVOFLURANE
     Indication: Sedation
     Dosage: UNK
  5. ROCURONIUM [Concomitant]
     Active Substance: ROCURONIUM BROMIDE
     Dosage: UNK

REACTIONS (7)
  - Swelling face [Recovered/Resolved]
  - Hypertension [Recovered/Resolved]
  - Eye haemorrhage [Recovered/Resolved]
  - Ear haemorrhage [Recovered/Resolved]
  - Epistaxis [Recovered/Resolved]
  - Dysphonia [Recovered/Resolved]
  - Tachycardia [Unknown]

NARRATIVE: CASE EVENT DATE: 20230428
